FAERS Safety Report 7522079-0 (Version None)
Quarter: 2011Q2

REPORT INFORMATION
  Report Type: 
  Country: None (occurrence: None)
  Receive Date: 20110603
  Receipt Date: 20110525
  Transmission Date: 20111010
  Serious: Yes (Other)
  Sender: FDA-Public Use
  Company Number: US-JNJFOC-20110511932

PATIENT
  Age: 63 Year
  Sex: Male

DRUGS (10)
  1. LISINOPRIL [Concomitant]
     Route: 065
  2. ASPIRIN [Suspect]
     Indication: PRODUCT USED FOR UNKNOWN INDICATION
     Route: 065
  3. INSULIN [Concomitant]
     Dosage: 15 UNITS IN EVENING + 20 UNITS IN MORNING
     Route: 065
  4. MULTI-VITAMINS [Concomitant]
     Route: 065
  5. PREDNISONE [Suspect]
     Indication: PROSTATE CANCER
     Route: 048
  6. PANTOPRAZOLE [Concomitant]
     Route: 042
  7. ABIRATERONE ACETATE [Suspect]
     Route: 048
  8. ABIRATERONE ACETATE [Suspect]
     Indication: PROSTATE CANCER
     Route: 048
  9. CALCIUM CARBONATE / VITAMIN D [Concomitant]
     Route: 065
  10. LUPRON [Concomitant]
     Route: 065

REACTIONS (1)
  - ANAEMIA [None]
